FAERS Safety Report 7785276-5 (Version None)
Quarter: 2011Q3

REPORT INFORMATION
  Report Type: 
  Country: None (occurrence: None)
  Receive Date: 20110929
  Receipt Date: 20110922
  Transmission Date: 20111222
  Serious: Yes (Other)
  Sender: FDA-Public Use
  Company Number: DE-UCBSA-041941

PATIENT

DRUGS (2)
  1. VIMPAT [Suspect]
  2. KEPPRA [Suspect]

REACTIONS (2)
  - GRAND MAL CONVULSION [None]
  - CONVULSION [None]
